FAERS Safety Report 6242488-X (Version None)
Quarter: 2009Q2

REPORT INFORMATION
  Report Type: 
  Country: None (occurrence: None)
  Receive Date: 20090622
  Receipt Date: 20090622
  Transmission Date: 20091009
  Serious: No
  Sender: FDA-Public Use
  Company Number: None

PATIENT
  Sex: Female
  Weight: 90.7194 kg

DRUGS (4)
  1. ZICAM COLD NASAL SPRAY [Suspect]
     Indication: MULTIPLE ALLERGIES
     Dosage: ONE SPRAY ONCE PER DAY
     Dates: start: 20010101, end: 20090101
  2. ZICAM COLD NASAL SPRAY [Suspect]
     Indication: NASOPHARYNGITIS
     Dosage: ONE SPRAY ONCE PER DAY
     Dates: start: 20010101, end: 20090101
  3. ZICAM ALLERGY NASAL SPRAY [Suspect]
     Indication: MULTIPLE ALLERGIES
     Dosage: ONE SPRAY ONCE PER DAY
     Dates: start: 20010101, end: 20090101
  4. ZICAM ALLERGY NASAL SPRAY [Suspect]
     Indication: NASOPHARYNGITIS
     Dosage: ONE SPRAY ONCE PER DAY
     Dates: start: 20010101, end: 20090101

REACTIONS (2)
  - DYSGEUSIA [None]
  - PAROSMIA [None]
